FAERS Safety Report 23904416 (Version 1)
Quarter: 2024Q2

REPORT INFORMATION
  Report Type: Spontaneous
  Country: US (occurrence: US)
  Receive Date: 20240527
  Receipt Date: 20240527
  Transmission Date: 20240716
  Serious: No
  Sender: FDA-Public Use
  Company Number: US-CSLP-23401895400-V11252839-81

PATIENT
  Age: 31 Year
  Sex: Female

DRUGS (1)
  1. ANTICOAGULANT SODIUM CITRATE [Suspect]
     Active Substance: SODIUM CITRATE
     Indication: Anticoagulant therapy
     Route: 050
     Dates: start: 20240507, end: 20240507

REACTIONS (5)
  - Pain [Recovered/Resolved]
  - Dysgeusia [Recovered/Resolved]
  - Hyperhidrosis [Recovered/Resolved]
  - Tetany [Recovered/Resolved]
  - Muscle spasms [Recovered/Resolved]

NARRATIVE: CASE EVENT DATE: 20240507
